FAERS Safety Report 16331355 (Version 1)
Quarter: 2019Q2

REPORT INFORMATION
  Report Type: Spontaneous
  Country: US (occurrence: US)
  Receive Date: 20190517
  Receipt Date: 20190517
  Transmission Date: 20190711
  Serious: Yes (Life-Threatening, Disabling)
  Sender: FDA-Public Use
  Company Number: None

PATIENT
  Age: 34 Year
  Sex: Female
  Weight: 78.75 kg

DRUGS (3)
  1. ALPRAZOLAM. [Suspect]
     Active Substance: ALPRAZOLAM
     Indication: PALPITATIONS
     Dosage: ?          QUANTITY:1 TABLET(S);?
     Route: 048
     Dates: start: 20091031, end: 20130603
  2. MAGNESIUM GLYCINATE [Concomitant]
     Active Substance: MAGNESIUM GLYCINATE
  3. ALPRAZOLAM. [Suspect]
     Active Substance: ALPRAZOLAM
     Indication: ANXIETY
     Dosage: ?          QUANTITY:1 TABLET(S);?
     Route: 048
     Dates: start: 20091031, end: 20130603

REACTIONS (20)
  - Neuralgia [None]
  - Hyperacusis [None]
  - Heart rate abnormal [None]
  - Fear [None]
  - Food intolerance [None]
  - Nervous system disorder [None]
  - Muscle spasms [None]
  - Burning sensation [None]
  - Blood pressure fluctuation [None]
  - Depression [None]
  - Feeling abnormal [None]
  - Paraesthesia [None]
  - Anxiety [None]
  - Drug withdrawal syndrome [None]
  - Agoraphobia [None]
  - Hallucination [None]
  - Postural orthostatic tachycardia syndrome [None]
  - Amnesia [None]
  - Suicidal ideation [None]
  - Brain injury [None]

NARRATIVE: CASE EVENT DATE: 20130603
